FAERS Safety Report 14421210 (Version 3)
Quarter: 2018Q1

REPORT INFORMATION
  Report Type: Report from Study
  Country: NL (occurrence: NL)
  Receive Date: 20180122
  Receipt Date: 20180315
  Transmission Date: 20180509
  Serious: Yes (Death, Other)
  Sender: FDA-Public Use
  Company Number: NL-ACTELION-A-NJ2018-166237

PATIENT
  Age: 67 Year
  Sex: Male

DRUGS (1)
  1. VENTAVIS [Suspect]
     Active Substance: ILOPROST
     Indication: PULMONARY ARTERIAL HYPERTENSION
     Dosage: 5 MCG, 9 TIMES A DAY
     Route: 055
     Dates: end: 20180119

REACTIONS (4)
  - Death [Fatal]
  - Terminal state [Not Recovered/Not Resolved]
  - Lung disorder [Unknown]
  - Malaise [Unknown]

NARRATIVE: CASE EVENT DATE: 20180119
